FAERS Safety Report 4400945-2 (Version None)
Quarter: 2004Q3

REPORT INFORMATION
  Report Type: 
  Country: None (occurrence: None)
  Receive Date: 20040907
  Receipt Date: 20030819
  Transmission Date: 20050211
  Serious: No
  Sender: FDA-Public Use
  Company Number: US-BRISTOL-MYERS SQUIBB COMPANY-12360343

PATIENT
  Age: 30 Month
  Sex: Male
  Weight: 5 kg

DRUGS (4)
  1. COUMADIN [Suspect]
     Indication: HEART DISEASE CONGENITAL
     Dosage: DOSE VALUE:  2 MG TO 5 MG
     Route: 048
     Dates: start: 20030810
  2. LASIX [Concomitant]
  3. ZANTAC [Concomitant]
  4. ATENOLOL [Concomitant]

REACTIONS (1)
  - INTERNATIONAL NORMALISED RATIO DECREASED [None]
